FAERS Safety Report 14604404 (Version 2)
Quarter: 2018Q2

REPORT INFORMATION
  Report Type: Spontaneous
  Country: BE (occurrence: BE)
  Receive Date: 20180306
  Receipt Date: 20180411
  Transmission Date: 20180711
  Serious: Yes (Life-Threatening, Hospitalization)
  Sender: FDA-Public Use
  Company Number: BE-BAYER-2018-041839

PATIENT
  Age: 17 Year
  Sex: Male
  Weight: 66 kg

DRUGS (1)
  1. ALEVE [Suspect]
     Active Substance: NAPROXEN SODIUM
     Indication: SACROILIITIS
     Dosage: 500 MG, UNK
     Route: 048
     Dates: start: 20180131, end: 20180212

REACTIONS (5)
  - Leukopenia [Unknown]
  - Inflammatory marker increased [Unknown]
  - Anaemia [Unknown]
  - Acute kidney injury [Unknown]
  - Thrombocytopenia [Unknown]

NARRATIVE: CASE EVENT DATE: 20180210
